FAERS Safety Report 22640351 (Version 1)
Quarter: 2023Q2

REPORT INFORMATION
  Report Type: Spontaneous
  Country: US (occurrence: US)
  Receive Date: 20230626
  Receipt Date: 20230626
  Transmission Date: 20230722
  Serious: Yes (Death, Hospitalization, Other)
  Sender: FDA-Public Use
  Company Number: US-Shilpa Medicare Limited-SML-US-2023-00882

PATIENT
  Age: 68 Year
  Sex: Male

DRUGS (1)
  1. DOCETAXEL [Suspect]
     Active Substance: DOCETAXEL
     Indication: Squamous cell carcinoma

REACTIONS (5)
  - Disease progression [Fatal]
  - Gastrointestinal haemorrhage [Unknown]
  - Metastatic neoplasm [Unknown]
  - Drug tolerance [Unknown]
  - Drug ineffective [Unknown]
